FAERS Safety Report 4364031-2 (Version None)
Quarter: 2004Q2

REPORT INFORMATION
  Report Type: 
  Country: None (occurrence: None)
  Receive Date: 20040519
  Receipt Date: 20040513
  Transmission Date: 20050107
  Serious: Yes (Life-Threatening, Hospitalization, Other)
  Sender: FDA-Public Use
  Company Number: 2004212278GB

PATIENT
  Age: 42 Year
  Sex: Female
  Weight: 71 kg

DRUGS (4)
  1. PHARMORUBICIN RD (EPIRUBICIN)HYDROCHLORIDE) [Suspect]
     Indication: BREAST CANCER METASTATIC
     Dosage: 130 MG, CYCLIC; 110 MG, CYCLIC
     Dates: start: 20040122
  2. ZOLEDRONATE (ZOLEDRONIC ACID) [Suspect]
     Indication: METASTASES TO BONE
     Dosage: 4 MG, 3 TIMES WEEKLY, IV
     Route: 042
     Dates: start: 20040122
  3. CYCLOPHOSPHAMIDE [Suspect]
     Indication: BREAST CANCER METASTATIC
     Dosage: 900 MG, CYCLIC; 750 MG, CYCLIC
     Route: 042
     Dates: start: 20040122
  4. FLUOROURACIL [Suspect]
     Indication: BREAST CANCER METASTATIC
     Dosage: 900 MG, CYCLIC; 750 MG, CYCLIC
     Route: 042
     Dates: start: 20040122

REACTIONS (7)
  - BACK PAIN [None]
  - DIARRHOEA [None]
  - DYSPNOEA [None]
  - MUSCULOSKELETAL PAIN [None]
  - NAUSEA [None]
  - PLEURAL EFFUSION [None]
  - PULMONARY EMBOLISM [None]
